FAERS Safety Report 5650512-8 (Version None)
Quarter: 2008Q1

REPORT INFORMATION
  Report Type: 
  Country: None (occurrence: None)
  Receive Date: 20080304
  Receipt Date: 20080304
  Transmission Date: 20080703
  Serious: Yes (Other)
  Sender: FDA-Public Use
  Company Number: None

PATIENT
  Age: 56 Year
  Sex: Female
  Weight: 104.3273 kg

DRUGS (2)
  1. LEXAPRO [Suspect]
     Indication: ANXIETY
     Dosage: 10MG ONCE A DAY PO
     Route: 048
     Dates: start: 20071217, end: 20080229
  2. LEXAPRO [Suspect]
     Indication: DEPRESSION
     Dosage: 10MG ONCE A DAY PO
     Route: 048
     Dates: start: 20071217, end: 20080229

REACTIONS (8)
  - HOT FLUSH [None]
  - HYPERHIDROSIS [None]
  - MASTICATION DISORDER [None]
  - MUSCLE TIGHTNESS [None]
  - MUSCULOSKELETAL PAIN [None]
  - NO THERAPEUTIC RESPONSE [None]
  - PAIN IN JAW [None]
  - WITHDRAWAL SYNDROME [None]
